FAERS Safety Report 6594717-0 (Version None)
Quarter: 2010Q1

REPORT INFORMATION
  Report Type: 
  Country: None (occurrence: None)
  Receive Date: 20100222
  Receipt Date: 20100208
  Transmission Date: 20100710
  Serious: Yes (Death, Hospitalization)
  Sender: FDA-Public Use
  Company Number: IT-MYLANLABS-2010S1001949

PATIENT
  Age: 43 Year
  Sex: Male
  Weight: 63 kg

DRUGS (18)
  1. NIFEDIPINE [Suspect]
     Indication: HYPERTENSION
     Dates: start: 20071031
  2. DISULFIRAM [Suspect]
     Indication: ALCOHOL ABUSE
     Dates: start: 20070501
  3. AMITRIPTYLINE HCL [Interacting]
     Indication: ALCOHOL ABUSE
     Dates: start: 20070501
  4. LAMIVUDINE + ZIDOVUDINE [Suspect]
     Indication: HIV INFECTION
     Dosage: 150/250MG TWICE DAILY, RESPECTIVELY
     Dates: start: 19980101, end: 19990101
  5. STAVUDINE [Suspect]
     Indication: HIV INFECTION
     Dates: start: 19990101, end: 20010101
  6. DIDANOSINE [Suspect]
     Indication: HIV INFECTION
     Dates: start: 19990101, end: 20010101
  7. EFAVIRENZ [Suspect]
     Indication: HYPERTENSION
     Dates: start: 19990101, end: 20010101
  8. TENOFOVIR [Suspect]
     Indication: HIV INFECTION
     Dates: start: 20060901, end: 20070201
  9. LAMIVUDINE [Suspect]
     Indication: HIV INFECTION
     Dates: start: 20060901, end: 20070201
  10. EMTRICITABINE AND TENOFOVIR DISOPROXIL FUMARATE [Suspect]
     Indication: HIV INFECTION
     Dosage: 200/300MG DAILY, RESPECTIVELY
     Dates: start: 20070401
  11. FOSAMPRENAVIR [Interacting]
     Indication: HIV INFECTION
     Dates: start: 20070401
  12. RITONAVIR [Interacting]
     Indication: HIV INFECTION
     Dates: start: 20070401
  13. THIAMINE [Concomitant]
     Indication: NEUROPATHY PERIPHERAL
     Dates: start: 20070401
  14. RIBOFLAVIN TAB [Concomitant]
     Indication: HYPERTENSION
     Dates: start: 20070401
  15. PYRIDOXINE [Concomitant]
     Indication: NEUROPATHY PERIPHERAL
     Dates: start: 20070401
  16. MAGNESIUM [Concomitant]
     Indication: NEUROPATHY PERIPHERAL
     Dates: start: 20070401
  17. LORAZEPAM [Concomitant]
     Indication: INSOMNIA
     Dates: start: 20070401
  18. GABAPENTIN [Concomitant]
     Indication: NEUROPATHY PERIPHERAL
     Dates: start: 20070401

REACTIONS (3)
  - CONFUSIONAL STATE [None]
  - DRUG INTERACTION [None]
  - LACTIC ACIDOSIS [None]
